FAERS Safety Report 19250501 (Version 1)
Quarter: 2021Q2

REPORT INFORMATION
  Report Type: Spontaneous
  Country: JP (occurrence: JP)
  Receive Date: 20210513
  Receipt Date: 20210513
  Transmission Date: 20210717
  Serious: Yes (Hospitalization)
  Sender: FDA-Public Use
  Company Number: JP-TEVA-2021-JP-1912218

PATIENT
  Age: 72 Year
  Sex: Male

DRUGS (5)
  1. CETUXIMAB. [Suspect]
     Active Substance: CETUXIMAB
     Indication: HYPOPHARYNGEAL CANCER
     Dosage: FOR FIVE CYCLES EVERY THREE WEEKS FOR THREE MONTHS
     Route: 042
  2. LANDIOLOL [Suspect]
     Active Substance: LANDIOLOL
     Indication: SUPRAVENTRICULAR TACHYCARDIA
     Route: 042
  3. 5?FLUOROURACIL [Suspect]
     Active Substance: FLUOROURACIL
     Indication: HYPOPHARYNGEAL CANCER
     Dosage: FOR FIVE CYCLES EVERY THREE WEEKS FOR THREE MONTHS
     Route: 042
  4. VERAPAMIL [Suspect]
     Active Substance: VERAPAMIL HYDROCHLORIDE
     Indication: SUPRAVENTRICULAR TACHYCARDIA
     Route: 042
  5. CISPLATIN. [Suspect]
     Active Substance: CISPLATIN
     Indication: HYPOPHARYNGEAL CANCER
     Dosage: FOR FIVE CYCLES EVERY THREE WEEKS FOR THREE MONTHS
     Route: 042

REACTIONS (5)
  - Drug ineffective [Unknown]
  - Ventricular tachycardia [Recovered/Resolved]
  - Atrial tachycardia [Recovered/Resolved]
  - Hypomagnesaemia [Recovered/Resolved]
  - Supraventricular tachycardia [Recovered/Resolved]
